FAERS Safety Report 4604115-4 (Version None)
Quarter: 2005Q1

REPORT INFORMATION
  Report Type: 
  Country: None (occurrence: None)
  Receive Date: 20050308
  Receipt Date: 20050308
  Transmission Date: 20050727
  Serious: Yes (Hospitalization)
  Sender: FDA-Public Use
  Company Number: None

PATIENT
  Age: 45 Year
  Sex: Male
  Weight: 76.2043 kg

DRUGS (5)
  1. ENALAPRIL  5 MG [Suspect]
     Dosage: 5 MG DAILY ORAL
     Route: 048
  2. PHENYTOIN [Concomitant]
  3. HYDROCHLOROTHIAZIDE [Concomitant]
  4. LORAZEPAM [Concomitant]
  5. TRAMADOL HCL [Concomitant]

REACTIONS (1)
  - ANGIONEUROTIC OEDEMA [None]
